FAERS Safety Report 5285748-1 (Version None)
Quarter: 2007Q1

REPORT INFORMATION
  Report Type: 
  Country: None (occurrence: None)
  Receive Date: 20070126
  Receipt Date: 20061206
  Transmission Date: 20070707
  Serious: No
  Sender: FDA-Public Use
  Company Number: 2007CT000012

PATIENT
  Age: 71 Year
  Sex: Female
  Weight: 52.6 kg

DRUGS (7)
  1. VENTAVIS [Suspect]
     Indication: PULMONARY HYPERTENSION
     Dosage: 5 UG;6XD;INH
     Route: 055
     Dates: start: 20061108
  2. LASIX [Concomitant]
  3. LORAZEPAM [Concomitant]
  4. SPIRONOLACTONE [Concomitant]
  5. METOPROLOL TARTRATE [Concomitant]
  6. SILDENAFIL CITRATE [Concomitant]
  7. VALSARTAN [Concomitant]

REACTIONS (2)
  - BONE PAIN [None]
  - MYALGIA [None]
